FAERS Safety Report 5764962-2 (Version None)
Quarter: 2008Q2

REPORT INFORMATION
  Report Type: 
  Country: None (occurrence: None)
  Receive Date: 20080611
  Receipt Date: 20080606
  Transmission Date: 20081010
  Serious: Yes (Life-Threatening)
  Sender: FDA-Public Use
  Company Number: B0524009A

PATIENT
  Age: 35 Year
  Sex: Female

DRUGS (3)
  1. LAMICTAL [Suspect]
     Indication: EPILEPSY
     Dosage: 500MG PER DAY
     Route: 048
  2. METRONIDAZOLE HCL [Suspect]
     Indication: INFECTION
     Dosage: 1200MG PER DAY
  3. TEGRETOL [Suspect]
     Indication: EPILEPSY
     Dosage: 800MG PER DAY
     Route: 048

REACTIONS (2)
  - CONVULSION [None]
  - DEPRESSED LEVEL OF CONSCIOUSNESS [None]
